FAERS Safety Report 15259705 (Version 1)
Quarter: 2018Q3

REPORT INFORMATION
  Report Type: Spontaneous
  Country: MX (occurrence: MX)
  Receive Date: 20180809
  Receipt Date: 20180809
  Transmission Date: 20181010
  Serious: Yes (Other)
  Sender: FDA-Public Use
  Company Number: MX-BAYER-2018-149903

PATIENT
  Age: 45 Year
  Sex: Female

DRUGS (2)
  1. FLANAX CAPS [Suspect]
     Active Substance: NAPROXEN
  2. ASPIRINA 500 MG [Suspect]
     Active Substance: ASPIRIN

REACTIONS (1)
  - Gastric ulcer [Unknown]
